FAERS Safety Report 17479407 (Version 1)
Quarter: 2020Q1

REPORT INFORMATION
  Report Type: Spontaneous
  Country: RU (occurrence: RU)
  Receive Date: 20200228
  Receipt Date: 20200228
  Transmission Date: 20200409
  Serious: Yes (Other)
  Sender: FDA-Public Use
  Company Number: RU-BAYER-2020-032227

PATIENT
  Age: 45 Year
  Sex: Female
  Weight: 69 kg

DRUGS (2)
  1. QLAIRA [Suspect]
     Active Substance: DIENOGEST\ESTRADIOL VALERATE
     Indication: MENSTRUAL CYCLE MANAGEMENT
     Dosage: UNK
     Dates: start: 20191225, end: 20200218
  2. QLAIRA [Suspect]
     Active Substance: DIENOGEST\ESTRADIOL VALERATE
     Indication: CONTRACEPTION
     Dosage: UNK DF
     Dates: start: 2015

REACTIONS (7)
  - Ovarian cyst ruptured [None]
  - Abdominal pain lower [None]
  - Circulatory collapse [None]
  - Uterine leiomyoma [None]
  - Suspected counterfeit product [None]
  - Haemorrhagic ovarian cyst [None]
  - Ovarian cyst [None]

NARRATIVE: CASE EVENT DATE: 20200202
